FAERS Safety Report 7204985-X (Version None)
Quarter: 2010Q4

REPORT INFORMATION
  Report Type: 
  Country: None (occurrence: None)
  Receive Date: 20101230
  Receipt Date: 20101221
  Transmission Date: 20110411
  Serious: Yes (Hospitalization, Other)
  Sender: FDA-Public Use
  Company Number: CO-AMGEN-QUU439145

PATIENT

DRUGS (10)
  1. ETANERCEPT [Suspect]
     Indication: RHEUMATOID ARTHRITIS
     Dosage: 50 MG, QWK
     Route: 065
     Dates: start: 20090301, end: 20101031
  2. AMLODIPINE [Suspect]
     Indication: HYPERTENSION
     Dosage: 5 MG, QD
     Route: 048
     Dates: start: 20080101
  3. HYDROCHLOROTHIAZIDE [Concomitant]
     Indication: HYPERTENSION
     Dosage: 25 MG, UNK
     Route: 048
  4. LOSARTAN [Concomitant]
     Indication: HYPERTENSION
     Dosage: 50 MG, UNK
     Route: 048
  5. ARAVA [Concomitant]
     Indication: RHEUMATOID ARTHRITIS
     Dosage: 20 MG, UNK
     Route: 065
     Dates: start: 20060101
  6. INSULIN [Concomitant]
     Indication: TYPE 2 DIABETES MELLITUS
     Dosage: 5 IU, UNK
     Route: 065
     Dates: start: 20010101
  7. METFORMIN [Concomitant]
     Indication: DIABETES MELLITUS
     Dosage: 850 MG, UNK
     Route: 065
  8. CALCITRIOL [Concomitant]
     Indication: MEDICAL DIET
     Dosage: UNK UNK, UNK
     Route: 065
  9. CALCIUM CARBONATE [Concomitant]
     Indication: MEDICAL DIET
     Dosage: UNK UNK, UNK
     Route: 065
  10. ISOPHANE INSULIN [Concomitant]
     Indication: TYPE 2 DIABETES MELLITUS
     Dosage: UNK UNK, UNK
     Route: 065
     Dates: start: 20010101

REACTIONS (8)
  - FLUID RETENTION [None]
  - FUNGAL INFECTION [None]
  - GASTRIC DISORDER [None]
  - GASTROINTESTINAL FUNGAL INFECTION [None]
  - HYPOKALAEMIA [None]
  - KIDNEY INFECTION [None]
  - OEDEMA PERIPHERAL [None]
  - VARICOSE ULCERATION [None]
